FAERS Safety Report 11135420 (Version 1)
Quarter: 2015Q2

REPORT INFORMATION
  Report Type: Spontaneous
  Country: US (occurrence: None)
  Receive Date: 20150521
  Receipt Date: 20150521
  Transmission Date: 20150821
  Serious: Yes (Death)
  Sender: FDA-Public Use
  Company Number: FK201502293

PATIENT
  Age: 51 Year
  Sex: Male

DRUGS (3)
  1. METHYLPREDNISOLONE (MANUFACTURER UNKNOWN) (METHYLPREDNISOLONE SODIUM SUCCINATE) (METHYLPREDNISOLONE SODIUM SUCCINATE) [Suspect]
     Active Substance: METHYLPREDNISOLONE
     Indication: IMMUNOSUPPRESSANT DRUG THERAPY
  2. MYCOPHENOLATE MOFETIL (MYCOPHENOLATE MOFETIL) [Suspect]
     Active Substance: MYCOPHENOLATE MOFETIL
     Indication: IMMUNOSUPPRESSANT DRUG THERAPY
  3. THYMOGLOBULIN [Suspect]
     Active Substance: LAPINE T-LYMPHOCYTE IMMUNE GLOBULIN
     Indication: IMMUNOSUPPRESSANT DRUG THERAPY

REACTIONS (17)
  - Splenic embolism [None]
  - Endocarditis [None]
  - General physical health deterioration [None]
  - Acidosis [None]
  - Leukopenia [None]
  - Myocarditis [None]
  - Tachycardia [None]
  - Abdominal pain [None]
  - Graft infection [None]
  - Peritonitis [None]
  - Kidney infection [None]
  - Hypothermia [None]
  - Sepsis [None]
  - Cardio-respiratory arrest [None]
  - Hypotension [None]
  - Acinetobacter infection [None]
  - Pneumonia [None]
